FAERS Safety Report 10276657 (Version 1)
Quarter: 2014Q3

REPORT INFORMATION
  Report Type: Spontaneous
  Country: FR (occurrence: FR)
  Receive Date: 20140703
  Receipt Date: 20140703
  Transmission Date: 20150326
  Serious: Yes (Hospitalization)
  Sender: FDA-Public Use
  Company Number: FR-ASTRAZENECA-2014SE46551

PATIENT
  Age: 885 Month
  Sex: Female

DRUGS (6)
  1. ATACAND [Suspect]
     Active Substance: CANDESARTAN CILEXETIL
     Route: 048
     Dates: start: 201402, end: 20140515
  2. LASILIX [Suspect]
     Active Substance: FUROSEMIDE
     Route: 048
     Dates: start: 2002, end: 2014
  3. SECTRAL [Suspect]
     Active Substance: ACEBUTOLOL HYDROCHLORIDE
     Route: 048
     Dates: start: 1981, end: 2002
  4. AZOPT [Suspect]
     Active Substance: BRINZOLAMIDE
     Route: 047
  5. AERIUS [Suspect]
     Active Substance: DESLORATADINE
     Route: 048
     Dates: start: 2010
  6. SINGULAIR [Suspect]
     Active Substance: MONTELUKAST SODIUM
     Route: 048
     Dates: start: 2010

REACTIONS (3)
  - Organising pneumonia [Unknown]
  - Pyrexia [Unknown]
  - Dyspnoea [Unknown]

NARRATIVE: CASE EVENT DATE: 201405
